FAERS Safety Report 13516618 (Version 1)
Quarter: 2017Q2

REPORT INFORMATION
  Report Type: Spontaneous
  Country: US (occurrence: US)
  Receive Date: 20170505
  Receipt Date: 20170505
  Transmission Date: 20170830
  Serious: Yes (Hospitalization, Other)
  Sender: FDA-Public Use
  Company Number: US-BIOGEN-2017BI00395983

PATIENT
  Sex: Female

DRUGS (2)
  1. PREDNISONE. [Concomitant]
     Active Substance: PREDNISONE
     Indication: PRODUCT USED FOR UNKNOWN INDICATION
     Route: 065
  2. TECFIDERA [Suspect]
     Active Substance: DIMETHYL FUMARATE
     Indication: MULTIPLE SCLEROSIS
     Route: 048
     Dates: start: 20170324, end: 201704

REACTIONS (11)
  - Delirium [Recovered/Resolved with Sequelae]
  - Weight increased [Recovered/Resolved with Sequelae]
  - Dyspnoea [Unknown]
  - Seizure [Unknown]
  - Skin burning sensation [Recovered/Resolved with Sequelae]
  - Dehydration [Unknown]
  - Weight decreased [Unknown]
  - Decreased appetite [Recovered/Resolved with Sequelae]
  - Memory impairment [Unknown]
  - Vomiting [Unknown]
  - Fall [Recovered/Resolved]
